FAERS Safety Report 15719155 (Version 3)
Quarter: 2019Q1

REPORT INFORMATION
  Report Type: Spontaneous
  Country: PT (occurrence: PT)
  Receive Date: 20181213
  Receipt Date: 20190204
  Transmission Date: 20190417
  Serious: Yes (Death, Hospitalization, Other)
  Sender: FDA-Public Use
  Company Number: PT-ELI_LILLY_AND_COMPANY-PT201812002887

PATIENT
  Age: 47 Year
  Sex: Female
  Weight: 70 kg

DRUGS (2)
  1. DOXORUBICIN [Concomitant]
     Active Substance: DOXORUBICIN
     Indication: PRODUCT USED FOR UNKNOWN INDICATION
     Dosage: UNK, CYCLICAL
     Route: 065
  2. LARTRUVO [Suspect]
     Active Substance: OLARATUMAB
     Indication: PRODUCT USED FOR UNKNOWN INDICATION
     Dosage: 1050 MG, CYCLICAL
     Route: 042
     Dates: start: 20180626, end: 20181015

REACTIONS (6)
  - Acute kidney injury [Unknown]
  - Pulmonary embolism [Fatal]
  - Hypertension [Unknown]
  - Deep vein thrombosis [Fatal]
  - Shock [Fatal]
  - Acute hepatic failure [Unknown]

NARRATIVE: CASE EVENT DATE: 20181110
